FAERS Safety Report 21372897 (Version 1)
Quarter: 2022Q3

REPORT INFORMATION
  Report Type: Report from Study
  Country: NL (occurrence: NL)
  Receive Date: 20220924
  Receipt Date: 20220924
  Transmission Date: 20221026
  Serious: Yes (Other)
  Sender: FDA-Public Use
  Company Number: NL-ABBVIE-4129546

PATIENT
  Age: 79 Year
  Sex: Male

DRUGS (6)
  1. CARBIDOPA\LEVODOPA [Suspect]
     Active Substance: CARBIDOPA\LEVODOPA
     Indication: Parkinson^s disease
     Dosage: MD 11.0ML; CD 5.9ML/H; ED 2.0ML; CND 3.2 ML/H?REMAINS AT 16 HOURS
     Route: 050
     Dates: start: 20211019
  2. CARBIDOPA\LEVODOPA [Suspect]
     Active Substance: CARBIDOPA\LEVODOPA
  3. levodopa/ benserazide (MADOPAR) [Concomitant]
     Indication: Product used for unknown indication
     Dosage: 100/25MG, 2 TABLETS
     Route: 048
  4. levodopa/ benserazide(MADOPAR)  RETARD [Concomitant]
     Indication: Product used for unknown indication
     Dosage: 100/25MG, 2 TABLETS
     Route: 048
  5. ROTIGOTINE [Concomitant]
     Active Substance: ROTIGOTINE
     Indication: Product used for unknown indication
  6. SINEMET [Concomitant]
     Active Substance: CARBIDOPA\LEVODOPA
     Indication: Product used for unknown indication
     Dosage: TIME INTERVAL: 0.16666667 DAYS
     Route: 048

REACTIONS (9)
  - Cervical spinal stenosis [Recovering/Resolving]
  - Decreased appetite [Not Recovered/Not Resolved]
  - Dysarthria [Not Recovered/Not Resolved]
  - On and off phenomenon [Not Recovered/Not Resolved]
  - Restlessness [Not Recovered/Not Resolved]
  - Muscle rigidity [Not Recovered/Not Resolved]
  - Dyskinesia [Not Recovered/Not Resolved]
  - Bradykinesia [Not Recovered/Not Resolved]
  - Unevaluable event [Not Recovered/Not Resolved]
